FAERS Safety Report 8192936-3 (Version None)
Quarter: 2012Q1

REPORT INFORMATION
  Report Type: 
  Country: None (occurrence: None)
  Receive Date: 20120308
  Receipt Date: 20120302
  Transmission Date: 20120608
  Serious: Yes (Life-Threatening, Hospitalization)
  Sender: FDA-Public Use
  Company Number: FR-BRISTOL-MYERS SQUIBB COMPANY-16431348

PATIENT
  Age: 68 Year
  Sex: Male

DRUGS (1)
  1. COUMADIN [Suspect]
     Indication: PROPHYLAXIS
     Dosage: RESTARTED ON:29DEC11
     Route: 048
     Dates: start: 20111215

REACTIONS (4)
  - DYSGLOBULINAEMIA [None]
  - TRANSPLANT REJECTION [None]
  - GASTROINTESTINAL HAEMORRHAGE [None]
  - MELAENA [None]
